FAERS Safety Report 10441063 (Version 1)
Quarter: 2014Q3

REPORT INFORMATION
  Report Type: Spontaneous
  Country: US (occurrence: None)
  Receive Date: 20140905
  Receipt Date: 20140905
  Transmission Date: 20150326
  Serious: Yes (Life-Threatening, Disabling, Other)
  Sender: FDA-Public Use
  Company Number: None

PATIENT
  Age: 63 Year
  Sex: Male
  Weight: 71.22 kg

DRUGS (1)
  1. LATUDA [Suspect]
     Active Substance: LURASIDONE HYDROCHLORIDE
     Indication: BIPOLAR I DISORDER
     Route: 048
     Dates: start: 20140822, end: 20140904

REACTIONS (15)
  - Restlessness [None]
  - Pain [None]
  - Feeling abnormal [None]
  - Feeling of despair [None]
  - Violence-related symptom [None]
  - Anger [None]
  - Malaise [None]
  - Disorientation [None]
  - Hallucination, auditory [None]
  - Suicidal ideation [None]
  - Influenza like illness [None]
  - Confusional state [None]
  - Feeling of body temperature change [None]
  - Psychotic disorder [None]
  - Agitation [None]

NARRATIVE: CASE EVENT DATE: 20140904
